FAERS Safety Report 6968844-X (Version None)
Quarter: 2010Q3

REPORT INFORMATION
  Report Type: 
  Country: None (occurrence: None)
  Receive Date: 20100903
  Receipt Date: 20100903
  Transmission Date: 20110219
  Serious: Yes (Disabling)
  Sender: FDA-Public Use
  Company Number: None

PATIENT
  Age: 62 Year
  Sex: Female
  Weight: 70.5 kg

DRUGS (2)
  1. PREVACID [Suspect]
     Indication: GASTROOESOPHAGEAL REFLUX DISEASE
     Dosage: 30 MG ONCE PER DAY PREVACID
     Dates: start: 20020201
  2. PREVACID [Suspect]
     Indication: GASTROOESOPHAGEAL REFLUX DISEASE
     Dosage: 30 MG ONCE PER DAY PREVACID
     Dates: start: 20100501

REACTIONS (6)
  - JOINT RANGE OF MOTION DECREASED [None]
  - MOBILITY DECREASED [None]
  - POST PROCEDURAL COMPLICATION [None]
  - UPPER LIMB FRACTURE [None]
  - WEIGHT BEARING DIFFICULTY [None]
  - WRIST FRACTURE [None]
